FAERS Safety Report 5683870-9 (Version None)
Quarter: 2008Q1

REPORT INFORMATION
  Report Type: 
  Country: None (occurrence: None)
  Receive Date: 20080326
  Receipt Date: 20080312
  Transmission Date: 20080703
  Serious: Yes (Hospitalization)
  Sender: FDA-Public Use
  Company Number: TCI2008A01210

PATIENT
  Age: 52 Year
  Sex: Male

DRUGS (7)
  1. PIOGLITAZONE HCL [Suspect]
     Indication: TYPE 2 DIABETES MELLITUS
     Dosage: 15 MG (15 MG, 1 IN 1 D) PER ORAL
     Route: 048
     Dates: start: 20070811, end: 20080228
  2. METFORMIN HCL [Suspect]
     Indication: TYPE 2 DIABETES MELLITUS
     Dosage: 500 MG/DAY, QD PER ORAL
     Route: 048
     Dates: start: 20071102, end: 20080228
  3. ACTOS [Concomitant]
  4. TRICHLORMETHIAZIDE [Concomitant]
  5. DOXAZOSIN MESYLATE [Concomitant]
  6. ENALAPRIL MALEATE [Concomitant]
  7. AMLODIPINE BESYLATE [Concomitant]

REACTIONS (6)
  - ANGINA PECTORIS [None]
  - FEELING HOT [None]
  - NECK PAIN [None]
  - PHARYNGOLARYNGEAL PAIN [None]
  - PYREXIA [None]
  - THROAT TIGHTNESS [None]
